FAERS Safety Report 6373872-1 (Version None)
Quarter: 2009Q3

REPORT INFORMATION
  Report Type: 
  Country: None (occurrence: None)
  Receive Date: 20090924
  Receipt Date: 20090512
  Transmission Date: 20100115
  Serious: No
  Sender: FDA-Public Use
  Company Number: US-ASTRAZENECA-2009UW12285

PATIENT
  Age: 25 Year
  Sex: Male

DRUGS (1)
  1. SEROQUEL XR [Suspect]
     Route: 048
     Dates: start: 20090511

REACTIONS (5)
  - AGITATION [None]
  - ANGER [None]
  - FEELING JITTERY [None]
  - INSOMNIA [None]
  - IRRITABILITY [None]
